FAERS Safety Report 9628741 (Version 3)
Quarter: 2013Q4

REPORT INFORMATION
  Report Type: Report from Study
  Country: US (occurrence: US)
  Receive Date: 20131017
  Receipt Date: 20131216
  Transmission Date: 20140711
  Serious: Yes (Hospitalization, Other)
  Sender: FDA-Public Use
  Company Number: US-JNJFOC-20131006348

PATIENT
  Age: 70 Year
  Sex: Female
  Weight: 131.54 kg

DRUGS (1)
  1. REMICADE [Suspect]
     Indication: RHEUMATOID ARTHRITIS
     Dosage: STARTED INFLIXIMAB IN JUN-2013 OR JUL-2013.
     Route: 042
     Dates: start: 201307, end: 201308

REACTIONS (4)
  - Myocardial infarction [Recovered/Resolved]
  - Pneumonia [Recovering/Resolving]
  - Adverse event [Unknown]
  - Gout [Not Recovered/Not Resolved]
